FAERS Safety Report 10265690 (Version 1)
Quarter: 2014Q2

REPORT INFORMATION
  Report Type: Spontaneous
  Country: US (occurrence: None)
  Receive Date: 20140625
  Receipt Date: 20140625
  Transmission Date: 20141212
  Serious: Yes (Life-Threatening, Disabling)
  Sender: FDA-Public Use
  Company Number: None

PATIENT
  Age: 74 Year
  Sex: Female
  Weight: 79.38 kg

DRUGS (1)
  1. SULFAMETHOXAZOLE\TRIMETHOPRIM [Suspect]
     Indication: INFECTION
     Dosage: 2 PILLS, 2X A DAY, BY MOUTH
     Route: 048
     Dates: start: 20130618, end: 20130623

REACTIONS (7)
  - Pain [None]
  - Cough [None]
  - Respiratory tract irritation [None]
  - Choking [None]
  - Headache [None]
  - Fatigue [None]
  - Chest pain [None]
